FAERS Safety Report 7739280-3 (Version None)
Quarter: 2011Q3

REPORT INFORMATION
  Report Type: 
  Country: None (occurrence: None)
  Receive Date: 20110909
  Receipt Date: 20110830
  Transmission Date: 20111222
  Serious: Yes (Death)
  Sender: FDA-Public Use
  Company Number: US-CELGENEUS-163-21880-11053578

PATIENT
  Sex: Male

DRUGS (6)
  1. OXYCODONE HCL [Concomitant]
     Indication: PAIN
     Dosage: 20 MILLIGRAM
     Route: 048
  2. REVLIMID [Suspect]
     Indication: MULTIPLE MYELOMA
     Dosage: 15 MILLIGRAM
     Route: 048
     Dates: start: 20080601, end: 20110504
  3. DEXAMETHASONE [Concomitant]
     Indication: MULTIPLE MYELOMA
     Dosage: 20 MILLIGRAM
     Route: 048
     Dates: end: 20110504
  4. ASPIRIN [Concomitant]
     Dosage: 81 MILLIGRAM
     Route: 048
  5. DURAGESIC-100 [Concomitant]
     Indication: PAIN
     Dosage: 100 MILLIGRAM
     Route: 065
  6. REVLIMID [Suspect]
     Dosage: 15 MILLIGRAM
     Route: 048
     Dates: start: 20100205

REACTIONS (1)
  - DEATH [None]
